FAERS Safety Report 6924364-X (Version None)
Quarter: 2010Q3

REPORT INFORMATION
  Report Type: 
  Country: None (occurrence: None)
  Receive Date: 20100811
  Receipt Date: 20100811
  Transmission Date: 20110219
  Serious: No
  Sender: FDA-Public Use
  Company Number: None

PATIENT
  Age: 22 Year
  Sex: Female
  Weight: 60.3284 kg

DRUGS (1)
  1. AURODEX EAR DROPS, MAJOR [Suspect]
     Indication: EAR PAIN
     Dosage: 3 DROPS Q 4-6 HOURS IN EAR
     Route: 001
     Dates: start: 20070821, end: 20070830

REACTIONS (3)
  - ERYTHEMA [None]
  - OEDEMA [None]
  - PRURITUS [None]
